FAERS Safety Report 8979983 (Version 1)
Quarter: 2012Q4

REPORT INFORMATION
  Report Type: 
  Country: ZA (occurrence: ZA)
  Receive Date: 20121221
  Receipt Date: 20121221
  Transmission Date: 20130627
  Serious: Yes (Hospitalization)
  Sender: FDA-Public Use
  Company Number: ZA-ABBOTT-12P-143-1002630-00

PATIENT
  Age: 39 Year
  Sex: Male

DRUGS (18)
  1. HUMIRA [Suspect]
     Indication: CROHN^S DISEASE
     Route: 058
     Dates: start: 20120727
  2. FLAGYL [Concomitant]
     Indication: INFECTION PROPHYLAXIS
     Route: 048
     Dates: start: 20120717
  3. MEDROL [Concomitant]
     Indication: CROHN^S DISEASE
     Route: 048
  4. ORPIC [Concomitant]
     Indication: INFECTION PROPHYLAXIS
     Route: 048
  5. CHELA FER [Concomitant]
     Indication: MINERAL SUPPLEMENTATION
     Route: 048
  6. SALAZOPYRIN [Concomitant]
     Indication: CROHN^S DISEASE
     Route: 048
  7. FOLIC ACID [Concomitant]
     Indication: SUPPLEMENTATION THERAPY
     Route: 048
  8. METHOTREXATE [Concomitant]
     Indication: CROHN^S DISEASE
     Route: 058
  9. ZIAK [Concomitant]
     Indication: HYPERTENSION
     Dosage: 5/6.25 MG
     Route: 048
  10. PREXUM [Concomitant]
     Indication: HYPERTENSION
     Route: 048
  11. INTERFLORA [Concomitant]
     Indication: CROHN^S DISEASE
     Route: 048
  12. CALCIFEROL [Concomitant]
     Indication: VITAMIN SUPPLEMENTATION
     Dosage: 50000 IU
     Route: 048
  13. TRAMACET [Concomitant]
     Indication: PAIN
     Route: 048
  14. OMEZ [Concomitant]
     Indication: PROPHYLAXIS AGAINST GASTROINTESTINAL ULCER
     Route: 048
  15. AZOR [Concomitant]
     Indication: ANXIETY
     Route: 058
  16. ZOLPIDEM [Concomitant]
     Indication: INSOMNIA
     Route: 048
  17. LEXAMIL [Concomitant]
     Indication: PRODUCT USED FOR UNKNOWN INDICATION
     Route: 048
  18. LIPOGEN [Concomitant]
     Indication: BLOOD CHOLESTEROL INCREASED
     Route: 048

REACTIONS (7)
  - Malaise [Not Recovered/Not Resolved]
  - Pyrexia [Unknown]
  - Diarrhoea [Not Recovered/Not Resolved]
  - Headache [Recovered/Resolved]
  - Skin ulcer [Unknown]
  - Colectomy [Unknown]
  - Rash [Not Recovered/Not Resolved]
